FAERS Safety Report 8956121 (Version 8)
Quarter: 2016Q4

REPORT INFORMATION
  Report Type: Spontaneous
  Country: US (occurrence: US)
  Receive Date: 20121210
  Receipt Date: 20161020
  Transmission Date: 20170207
  Serious: Yes (Hospitalization, Disabling, Other)
  Sender: FDA-Public Use
  Company Number: US-009507513-1212USA002773

PATIENT
  Sex: Male

DRUGS (1)
  1. PROPECIA [Suspect]
     Active Substance: FINASTERIDE
     Indication: ANDROGENETIC ALOPECIA
     Dosage: 1 MG, UNK
     Route: 048
     Dates: start: 20000113, end: 20070409

REACTIONS (54)
  - Cognitive disorder [Not Recovered/Not Resolved]
  - Nausea [Unknown]
  - Benign prostatic hyperplasia [Unknown]
  - Rotator cuff syndrome [Unknown]
  - Pain [Not Recovered/Not Resolved]
  - Attention deficit/hyperactivity disorder [Not Recovered/Not Resolved]
  - Dyspepsia [Unknown]
  - Asthenia [Unknown]
  - Back pain [Not Recovered/Not Resolved]
  - Melanocytic naevus [Unknown]
  - Sexually transmitted disease [Unknown]
  - Neoplasm malignant [Unknown]
  - Sleep disorder [Unknown]
  - Chronic hepatitis C [Not Recovered/Not Resolved]
  - Arthralgia [Not Recovered/Not Resolved]
  - Muscle atrophy [Unknown]
  - Depression [Not Recovered/Not Resolved]
  - Anxiety [Not Recovered/Not Resolved]
  - Vision blurred [Unknown]
  - Urine flow decreased [Unknown]
  - Paraesthesia [Unknown]
  - Lymphadenopathy [Unknown]
  - Hypertension [Not Recovered/Not Resolved]
  - Joint ankylosis [Not Recovered/Not Resolved]
  - Affective disorder [Not Recovered/Not Resolved]
  - Dizziness [Unknown]
  - Nocturia [Unknown]
  - Urinary retention [Unknown]
  - Feeling of body temperature change [Unknown]
  - Chronic obstructive pulmonary disease [Not Recovered/Not Resolved]
  - Fatigue [Unknown]
  - Loss of libido [Unknown]
  - Sexual dysfunction [Not Recovered/Not Resolved]
  - Thirst [Unknown]
  - Pain in extremity [Not Recovered/Not Resolved]
  - Hyperlipidaemia [Unknown]
  - Carpal tunnel syndrome [Unknown]
  - Blood testosterone decreased [Unknown]
  - Arthritis [Unknown]
  - Chest pain [Unknown]
  - Hypoaesthesia [Unknown]
  - Hypogonadism [Unknown]
  - Arthralgia [Unknown]
  - Bone fragmentation [Unknown]
  - Pulmonary mass [Unknown]
  - Erectile dysfunction [Unknown]
  - Myocardial infarction [Unknown]
  - Cardiac failure [Unknown]
  - Insomnia [Not Recovered/Not Resolved]
  - Micturition disorder [Unknown]
  - Skin irritation [Unknown]
  - Dysuria [Unknown]
  - Spinal osteoarthritis [Unknown]
  - Cardiac disorder [Unknown]

NARRATIVE: CASE EVENT DATE: 200001
